FAERS Safety Report 12612639 (Version 1)
Quarter: 2016Q3

REPORT INFORMATION
  Report Type: Spontaneous
  Country: US (occurrence: US)
  Receive Date: 20160801
  Receipt Date: 20160801
  Transmission Date: 20161109
  Serious: Yes (Other)
  Sender: FDA-Public Use
  Company Number: US-TAKEDA-2014TUS007275

PATIENT

DRUGS (10)
  1. AMARYL [Concomitant]
     Active Substance: GLIMEPIRIDE
     Dosage: UNK
  2. EMPIRIN COMPOUND [Concomitant]
     Dosage: UNK
  3. IFEX [Concomitant]
     Active Substance: IFOSFAMIDE
     Dosage: UNK
  4. ARISTOLOCHIA FANGCHI [Concomitant]
     Dosage: UNK
  5. ACTOS [Suspect]
     Active Substance: PIOGLITAZONE HYDROCHLORIDE
     Indication: TYPE 2 DIABETES MELLITUS
     Dosage: 15 MG, UNK
     Route: 048
     Dates: start: 20100922
  6. DRUG USED IN DIABETES [Concomitant]
     Active Substance: UNSPECIFIED INGREDIENT
     Indication: DIABETES MELLITUS
     Dosage: UNK
  7. CYTOXAN [Concomitant]
     Active Substance: CYCLOPHOSPHAMIDE
     Dosage: UNK
  8. JANUVIA [Concomitant]
     Active Substance: SITAGLIPTIN PHOSPHATE
     Dosage: UNK
  9. ACTOS [Suspect]
     Active Substance: PIOGLITAZONE HYDROCHLORIDE
     Dosage: UNK
     Route: 048
     Dates: start: 2012
  10. PHENACETIN [Concomitant]
     Active Substance: PHENACETIN
     Dosage: UNK

REACTIONS (3)
  - Renal failure [Unknown]
  - Myocardial infarction [Unknown]
  - Bladder cancer [Unknown]

NARRATIVE: CASE EVENT DATE: 2012
